FAERS Safety Report 19877254 (Version 1)
Quarter: 2021Q3

REPORT INFORMATION
  Report Type: Spontaneous
  Country: JP (occurrence: JP)
  Receive Date: 20210924
  Receipt Date: 20210924
  Transmission Date: 20211014
  Serious: Yes (Other)
  Sender: FDA-Public Use
  Company Number: JP-SA-2021SA301154

PATIENT
  Age: 40 Year
  Sex: Male

DRUGS (2)
  1. CORECTIM [Concomitant]
     Active Substance: DELGOCITINIB
     Indication: PRODUCT USED FOR UNKNOWN INDICATION
     Dosage: UNK
     Route: 061
  2. DUPIXENT [Suspect]
     Active Substance: DUPILUMAB
     Indication: DERMATITIS ATOPIC
     Dosage: 1 PEN, QOW
     Route: 058
     Dates: start: 20210813

REACTIONS (3)
  - Rash [Recovered/Resolved]
  - Condition aggravated [Recovered/Resolved]
  - Erythema multiforme [Recovered/Resolved]

NARRATIVE: CASE EVENT DATE: 202108
